FAERS Safety Report 12325276 (Version 1)
Quarter: 2016Q2

REPORT INFORMATION
  Report Type: Report from Study
  Country: US (occurrence: US)
  Receive Date: 20160502
  Receipt Date: 20160502
  Transmission Date: 20160815
  Serious: Yes (Hospitalization, Other)
  Sender: FDA-Public Use
  Company Number: US-TAKEDA-2016TUS006919

PATIENT
  Age: 43 Year
  Sex: Male
  Weight: 102.4 kg

DRUGS (6)
  1. VEDOLIZUMAB [Suspect]
     Active Substance: VEDOLIZUMAB
     Indication: CROHN^S DISEASE
     Dosage: 300 MG, UNK
     Route: 042
     Dates: start: 20150525
  2. XANAX [Concomitant]
     Active Substance: ALPRAZOLAM
     Indication: INSOMNIA
     Dosage: UNK UNK, QD
     Route: 048
  3. DHEA [Concomitant]
     Active Substance: PRASTERONE
     Dosage: 5 MG, BID
     Route: 048
  4. BUSPAR [Concomitant]
     Active Substance: BUSPIRONE HYDROCHLORIDE
     Indication: ANXIETY
     Dosage: UNK, BID
     Route: 048
  5. WELLBUTRIN [Concomitant]
     Active Substance: BUPROPION HYDROCHLORIDE
     Indication: DEPRESSION
     Dosage: UNK, BID
     Route: 048
  6. TESTOSTERONE. [Concomitant]
     Active Substance: TESTOSTERONE
     Indication: BLOOD TESTOSTERONE DECREASED
     Dosage: 0.6 ML, QD

REACTIONS (10)
  - Post procedural complication [Recovered/Resolved]
  - Vitamin D decreased [Not Recovered/Not Resolved]
  - Blood sodium decreased [Recovered/Resolved]
  - Headache [Not Recovered/Not Resolved]
  - White blood cell count increased [Recovered/Resolved]
  - Crohn^s disease [Unknown]
  - Renal pain [Recovered/Resolved]
  - Pneumonia [Recovered/Resolved]
  - Dizziness [Not Recovered/Not Resolved]
  - Vomiting [Recovered/Resolved]

NARRATIVE: CASE EVENT DATE: 201510
